FAERS Safety Report 6772300-1 (Version None)
Quarter: 2010Q2

REPORT INFORMATION
  Report Type: 
  Country: None (occurrence: None)
  Receive Date: 20100616
  Receipt Date: 20090909
  Transmission Date: 20101027
  Serious: No
  Sender: FDA-Public Use
  Company Number: US-ASTRAZENECA-2009SE12290

PATIENT
  Age: 89 Year
  Sex: Female

DRUGS (2)
  1. PULMICORT FLEXHALER [Suspect]
     Route: 055
  2. PULMICORT FLEXHALER [Suspect]
     Route: 055

REACTIONS (2)
  - MALAISE [None]
  - OVERDOSE [None]
